FAERS Safety Report 21669891 (Version 1)
Quarter: 2022Q4

REPORT INFORMATION
  Report Type: Spontaneous
  Country: US (occurrence: US)
  Receive Date: 20221201
  Receipt Date: 20221201
  Transmission Date: 20230113
  Serious: No
  Sender: FDA-Public Use
  Company Number: US-002147023-NVSC2022US279592

PATIENT
  Sex: Female

DRUGS (1)
  1. XIIDRA [Suspect]
     Active Substance: LIFITEGRAST
     Indication: Product used for unknown indication
     Dosage: 50 MILLIGRAM PER MILLILITRE, BID (AMPOULE) (5%)
     Route: 047
     Dates: start: 20220816, end: 20220830

REACTIONS (2)
  - Cyst [Recovered/Resolved]
  - Skin irritation [Recovered/Resolved]
